FAERS Safety Report 9312938 (Version 1)
Quarter: 2013Q2

REPORT INFORMATION
  Report Type: Spontaneous
  Country: US (occurrence: US)
  Receive Date: 20130528
  Receipt Date: 20130528
  Transmission Date: 20140414
  Serious: No
  Sender: FDA-Public Use
  Company Number: US-ABBOTT-13P-163-1063166-00

PATIENT
  Age: 64 Year
  Sex: Male
  Weight: 81.72 kg

DRUGS (6)
  1. ANDROGEL [Suspect]
     Indication: BLOOD TESTOSTERONE DECREASED
     Dates: start: 20130304
  2. ATENOLOL [Concomitant]
     Indication: HYPERTENSION
  3. NIFEDIPINE [Concomitant]
     Indication: HYPERTENSION
  4. ATORVASTATIN [Concomitant]
     Indication: BLOOD CHOLESTEROL INCREASED
  5. INDOMETHACIN [Concomitant]
     Indication: ARTHRITIS
  6. FUROSEMIDE [Concomitant]
     Indication: HYPERTENSION

REACTIONS (1)
  - Haematochezia [Unknown]
